FAERS Safety Report 14900412 (Version 1)
Quarter: 2018Q2

REPORT INFORMATION
  Report Type: Spontaneous
  Country: CA (occurrence: CA)
  Receive Date: 20180516
  Receipt Date: 20180516
  Transmission Date: 20180711
  Serious: Yes (Hospitalization, Other)
  Sender: FDA-Public Use
  Company Number: CA-AUROBINDO-AUR-APL-2018-024955

PATIENT
  Age: 82 Year
  Sex: Female

DRUGS (1)
  1. RAMIPRIL. [Suspect]
     Active Substance: RAMIPRIL
     Indication: HYPERTENSION
     Dosage: 2.5 MILLIGRAM, DAILY
     Route: 065

REACTIONS (10)
  - Angioedema [Recovering/Resolving]
  - Swollen tongue [Recovering/Resolving]
  - Dyspnoea [Recovering/Resolving]
  - Speech disorder [Recovering/Resolving]
  - Hyperhidrosis [Recovering/Resolving]
  - Dysphagia [Recovering/Resolving]
  - Agitation [Recovering/Resolving]
  - Tachypnoea [Recovering/Resolving]
  - Protrusion tongue [Recovering/Resolving]
  - Pharyngeal oedema [Recovering/Resolving]
